FAERS Safety Report 13123238 (Version 1)
Quarter: 2017Q1

REPORT INFORMATION
  Report Type: Report from Study
  Country: US (occurrence: US)
  Receive Date: 20170117
  Receipt Date: 20170117
  Transmission Date: 20170428
  Serious: No
  Sender: FDA-Public Use
  Company Number: US-AMGEN-USASL2016163389

PATIENT
  Age: 44 Year
  Sex: Male

DRUGS (16)
  1. ATORVASTATIN [Concomitant]
     Active Substance: ATORVASTATIN
     Indication: HYPERLIPIDAEMIA
     Dosage: 1 UNK, QD (40 MG TABLET)
  2. METOPROLOL TARTRATE. [Concomitant]
     Active Substance: METOPROLOL TARTRATE
     Dosage: 1 DF, BID
  3. VENLAFAXINE [Concomitant]
     Active Substance: VENLAFAXINE HYDROCHLORIDE
     Dosage: 1 DF, QD (75 MG CAPSULE)
  4. HYDROCODONE/ACETAMINOPHEN [Concomitant]
     Active Substance: ACETAMINOPHEN\HYDROCODONE
     Dosage: UNK PRN
  5. NIFEDICAL XL [Concomitant]
     Active Substance: NIFEDIPINE
     Dosage: 1 DF, QD
  6. CORLANOR [Suspect]
     Active Substance: IVABRADINE HYDROCHLORIDE
     Indication: SINUS TACHYCARDIA
     Dosage: 5 MG, BID FOR 90 DAYS
     Route: 048
  7. NEXIUM [Concomitant]
     Active Substance: ESOMEPRAZOLE MAGNESIUM
     Dosage: 1 DF, QD (40 MG CAPSULE)
  8. ATORVASTATIN [Concomitant]
     Active Substance: ATORVASTATIN
     Dosage: 1 DF, BID (80 MG TABLET) FOR 90 DAYS
     Route: 048
  9. GABAPENTIN. [Concomitant]
     Active Substance: GABAPENTIN
     Dosage: 1 DF, TID
  10. GLIPIZIDE. [Concomitant]
     Active Substance: GLIPIZIDE
     Dosage: 1 UNK, QD
  11. HYDROXYZINE PAMOATE. [Concomitant]
     Active Substance: HYDROXYZINE PAMOATE
     Dosage: 1.2 UNK, QD PRN
  12. VASCEPA [Concomitant]
     Active Substance: ICOSAPENT ETHYL
     Indication: HYPERLIPIDAEMIA
     Dosage: 2 DF, BID
     Route: 048
  13. VENTOLIN HFA [Concomitant]
     Active Substance: ALBUTEROL SULFATE
     Dosage: UNK PRN
  14. VENLAFAXINE [Concomitant]
     Active Substance: VENLAFAXINE HYDROCHLORIDE
     Dosage: 1 DF, QD (150 MG CAPSULE)
  15. ASPIRIN (E.C.) [Concomitant]
     Active Substance: ASPIRIN
     Dosage: 1 DF, QD
     Route: 048
  16. DOXEPIN [Concomitant]
     Active Substance: DOXEPIN
     Dosage: 1 UNK, QD PRN

REACTIONS (1)
  - Off label use [Unknown]
